FAERS Safety Report 10622713 (Version 1)
Quarter: 2014Q4

REPORT INFORMATION
  Report Type: Spontaneous
  Country: US (occurrence: None)
  Receive Date: 20141202
  Receipt Date: 20141202
  Transmission Date: 20150529
  Serious: No
  Sender: FDA-Public Use
  Company Number: None

PATIENT
  Age: 6 Year
  Sex: Male
  Weight: 20.41 kg

DRUGS (1)
  1. METHYLPHENIDATE 36MG KREMERS URBAN [Suspect]
     Active Substance: METHYLPHENIDATE
     Indication: ATTENTION DEFICIT/HYPERACTIVITY DISORDER
     Dosage: 1
     Route: 048
     Dates: start: 20140906, end: 20141201

REACTIONS (6)
  - Product quality issue [None]
  - Aggression [None]
  - Product substitution issue [None]
  - Disturbance in attention [None]
  - Educational problem [None]
  - Drug effect decreased [None]

NARRATIVE: CASE EVENT DATE: 20141201
